FAERS Safety Report 6023130-X (Version None)
Quarter: 2008Q4

REPORT INFORMATION
  Report Type: 
  Country: None (occurrence: None)
  Receive Date: 20081230
  Receipt Date: 20081216
  Transmission Date: 20090506
  Serious: Yes (Death, Hospitalization)
  Sender: FDA-Public Use
  Company Number: US-SANOFI-SYNTHELABO-A03200804067

PATIENT
  Sex: Male

DRUGS (4)
  1. LEUCOVORIN CALCIUM [Suspect]
     Indication: METASTATIC NEOPLASM
     Route: 042
  2. ELOXATIN [Suspect]
     Indication: METASTATIC NEOPLASM
     Dosage: 85 MG/M2 (170 MG)
     Route: 042
     Dates: start: 20071205, end: 20071205
  3. FLUOROURACIL [Suspect]
     Indication: METASTATIC NEOPLASM
     Route: 042
  4. TOPROL-XL [Concomitant]
     Indication: HYPERTENSION
     Route: 048

REACTIONS (10)
  - BLOOD PRESSURE IMMEASURABLE [None]
  - DEATH [None]
  - FAECAL INCONTINENCE [None]
  - HYPERHIDROSIS [None]
  - HYPERSENSITIVITY [None]
  - LOSS OF CONSCIOUSNESS [None]
  - STRIDOR [None]
  - THROAT IRRITATION [None]
  - UNRESPONSIVE TO STIMULI [None]
  - URINARY INCONTINENCE [None]
